FAERS Safety Report 8849528 (Version 2)
Quarter: 2014Q2

REPORT INFORMATION
  Report Type: Spontaneous
  Country: US (occurrence: US)
  Receive Date: 20121019
  Receipt Date: 20140414
  Transmission Date: 20141212
  Serious: Yes (Death, Hospitalization, Other)
  Sender: FDA-Public Use
  Company Number: US-JNJFOC-20120812190

PATIENT
  Age: 53 Year
  Sex: Female

DRUGS (8)
  1. REMICADE [Suspect]
     Indication: COLITIS ULCERATIVE
     Route: 042
     Dates: start: 20120403
  2. REMICADE [Suspect]
     Indication: COLITIS ULCERATIVE
     Route: 042
     Dates: start: 20120501
  3. REMICADE [Suspect]
     Indication: COLITIS ULCERATIVE
     Route: 042
     Dates: start: 20120618
  4. REMICADE [Suspect]
     Indication: COLITIS ULCERATIVE
     Route: 042
     Dates: start: 20120320
  5. AZATHIOPRINE [Suspect]
     Indication: COLITIS ULCERATIVE
     Dosage: 50 (UNITS UNSPECIFIED) DAILY
     Route: 065
     Dates: start: 20120302
  6. ALLOPURINOL [Suspect]
     Indication: PRODUCT USED FOR UNKNOWN INDICATION
     Dosage: 100 (UNITS UNSPECIFIED) DAILY
     Route: 065
     Dates: start: 20120302
  7. APRISO [Concomitant]
     Indication: COLITIS ULCERATIVE
     Dosage: 4 TABLETS
     Route: 065
     Dates: start: 20111031
  8. PREDNISONE [Concomitant]
     Indication: COLITIS ULCERATIVE
     Route: 065
     Dates: start: 20111031, end: 20120207

REACTIONS (8)
  - Bundle branch block left [Unknown]
  - Cardiac failure congestive [Fatal]
  - Cardiomyopathy [Fatal]
  - Hepatic congestion [Recovered/Resolved]
  - Liver injury [Unknown]
  - Cardiogenic shock [Unknown]
  - Pneumonia [Unknown]
  - Blood pressure decreased [Unknown]
